FAERS Safety Report 5577516-8 (Version None)
Quarter: 2007Q4

REPORT INFORMATION
  Report Type: 
  Country: None (occurrence: None)
  Receive Date: 20071228
  Receipt Date: 20071218
  Transmission Date: 20080405
  Serious: Yes (Other)
  Sender: FDA-Public Use
  Company Number: US-PFIZER INC-2007106985

PATIENT
  Sex: Female
  Weight: 38 kg

DRUGS (1)
  1. SUTENT [Suspect]
     Indication: BLADDER TRANSITIONAL CELL CARCINOMA

REACTIONS (4)
  - ILEUS [None]
  - IMPAIRED HEALING [None]
  - INTESTINAL PERFORATION [None]
  - SMALL INTESTINAL OBSTRUCTION [None]
